FAERS Safety Report 9293836 (Version 2)
Quarter: 2013Q3

REPORT INFORMATION
  Report Type: Spontaneous
  Country: US (occurrence: US)
  Receive Date: 20130516
  Receipt Date: 20130711
  Transmission Date: 20140515
  Serious: No
  Sender: FDA-Public Use
  Company Number: US-PFIZER INC-2013149818

PATIENT
  Sex: Female

DRUGS (2)
  1. LIPITOR [Suspect]
     Dosage: UNK
  2. PHOSLO [Suspect]
     Indication: BLOOD CALCIUM ABNORMAL
     Dosage: UNK

REACTIONS (1)
  - Hypercalcaemia [Unknown]
